APPROVED DRUG PRODUCT: THIAMINE HYDROCHLORIDE
Active Ingredient: THIAMINE HYDROCHLORIDE
Strength: 100MG/ML
Dosage Form/Route: INJECTABLE;INJECTION
Application: A080509 | Product #001
Applicant: ABRAXIS PHARMACEUTICAL PRODUCTS
Approved: Approved Prior to Jan 1, 1982 | RLD: No | RS: No | Type: DISCN